FAERS Safety Report 18278832 (Version 2)
Quarter: 2020Q4

REPORT INFORMATION
  Report Type: Spontaneous
  Country: FR (occurrence: FR)
  Receive Date: 20200917
  Receipt Date: 20201019
  Transmission Date: 20210113
  Serious: Yes (Hospitalization, Other)
  Sender: FDA-Public Use
  Company Number: FR-INSUD PHARMA-2009FR00208

PATIENT

DRUGS (2)
  1. SLYND [Suspect]
     Active Substance: DROSPIRENONE
     Indication: CONTRACEPTION
     Dosage: 1 TABLET DAILY
     Route: 048
     Dates: start: 20200428
  2. NONE REPORTED [Concomitant]

REACTIONS (4)
  - Headache [Unknown]
  - Malaise [Unknown]
  - Hemiparesis [Recovered/Resolved]
  - Migraine with aura [Unknown]

NARRATIVE: CASE EVENT DATE: 20200529
